FAERS Safety Report 7982427-4 (Version None)
Quarter: 2011Q4

REPORT INFORMATION
  Report Type: 
  Country: None (occurrence: None)
  Receive Date: 20111214
  Receipt Date: 20111214
  Transmission Date: 20120403
  Serious: Yes (Death)
  Sender: FDA-Public Use
  Company Number: None

PATIENT
  Age: 85 Year
  Sex: Male

DRUGS (6)
  1. AMLODIPINE [Concomitant]
  2. PREDNISONE [Concomitant]
  3. FUROSEMIDE [Concomitant]
  4. VICODIN [Concomitant]
  5. LACTULOSE [Concomitant]
  6. REVLIMID [Suspect]
     Indication: MYELODYSPLASTIC SYNDROME
     Dosage: 5MG EVERY OTHER DAY ORALLY
     Route: 048
     Dates: start: 20090701, end: 20111101

REACTIONS (2)
  - DISEASE PROGRESSION [None]
  - MYELODYSPLASTIC SYNDROME [None]
